FAERS Safety Report 8274783-7 (Version None)
Quarter: 2012Q2

REPORT INFORMATION
  Report Type: 
  Country: None (occurrence: None)
  Receive Date: 20120411
  Receipt Date: 20120405
  Transmission Date: 20120825
  Serious: Yes (Life-Threatening, Hospitalization)
  Sender: FDA-Public Use
  Company Number: DE-ELI_LILLY_AND_COMPANY-DE201204002661

PATIENT
  Age: 52 Year
  Sex: Female
  Weight: 60 kg

DRUGS (5)
  1. METOPROLOL SUCCINATE [Concomitant]
     Dosage: 47.5 MG, UNK
  2. EFFIENT [Suspect]
     Indication: CORONARY ARTERY DISEASE
     Dosage: 10 MG, UNK
     Route: 048
     Dates: end: 20110926
  3. DIOVAN HCT [Concomitant]
  4. OMACOR [Concomitant]
  5. ASPIRIN [Concomitant]
     Dosage: 100 MG, UNK

REACTIONS (2)
  - COLITIS [None]
  - HAEMORRHAGIC ANAEMIA [None]
